FAERS Safety Report 7952413-9 (Version None)
Quarter: 2011Q4

REPORT INFORMATION
  Report Type: 
  Country: None (occurrence: None)
  Receive Date: 20111201
  Receipt Date: 20111123
  Transmission Date: 20120403
  Serious: Yes (Other)
  Sender: FDA-Public Use
  Company Number: US-GLAXOSMITHKLINE-A0946181A

PATIENT
  Age: 72 Year
  Sex: Male

DRUGS (5)
  1. BENADRYL [Concomitant]
  2. ADVAIR DISKUS 100/50 [Suspect]
     Indication: EMPHYSEMA
     Dosage: 1PUFF TWICE PER DAY
     Route: 055
  3. HEPSERA [Concomitant]
  4. FISH OIL [Concomitant]
  5. LEVOXYL [Concomitant]

REACTIONS (6)
  - RASH [None]
  - WEIGHT DECREASED [None]
  - MUSCLE ATROPHY [None]
  - PRURITUS [None]
  - SKIN EXFOLIATION [None]
  - CALCIUM DEFICIENCY [None]
